FAERS Safety Report 5381205-2 (Version None)
Quarter: 2007Q3

REPORT INFORMATION
  Report Type: 
  Country: None (occurrence: None)
  Receive Date: 20070706
  Receipt Date: 20070624
  Transmission Date: 20080115
  Serious: Yes (Other)
  Sender: FDA-Public Use
  Company Number: US-PFIZER INC-2007052976

PATIENT
  Sex: Female

DRUGS (2)
  1. CHANTIX [Suspect]
     Route: 048
  2. EFFEXOR [Concomitant]

REACTIONS (2)
  - FEELING ABNORMAL [None]
  - UNEVALUABLE EVENT [None]
